FAERS Safety Report 5927573-1 (Version None)
Quarter: 2008Q4

REPORT INFORMATION
  Report Type: 
  Country: None (occurrence: None)
  Receive Date: 20081021
  Receipt Date: 20081021
  Transmission Date: 20090506
  Serious: Yes (Other)
  Sender: FDA-Public Use
  Company Number: None

PATIENT
  Age: 30 Year
  Sex: Female
  Weight: 90 kg

DRUGS (2)
  1. ONDANSETRON [Suspect]
     Indication: NAUSEA
     Dosage: 4 MG ONCE IV BOLUS
     Route: 040
     Dates: start: 20081019, end: 20081019
  2. ONDANSETRON [Suspect]
     Indication: VOMITING
     Dosage: 4 MG ONCE IV BOLUS
     Route: 040
     Dates: start: 20081019, end: 20081019

REACTIONS (1)
  - ERYTHEMA [None]
